FAERS Safety Report 25298181 (Version 1)
Quarter: 2025Q2

REPORT INFORMATION
  Report Type: Spontaneous
  Country: US (occurrence: US)
  Receive Date: 20250512
  Receipt Date: 20250512
  Transmission Date: 20250716
  Serious: No
  Sender: UCB
  Company Number: US-UCBSA-2024041163

PATIENT
  Age: 64 Year
  Sex: Female

DRUGS (1)
  1. CIMZIA [Suspect]
     Active Substance: CERTOLIZUMAB PEGOL
     Indication: Product used for unknown indication
     Route: 058

REACTIONS (5)
  - Injection site pain [Unknown]
  - Therapy interrupted [Unknown]
  - Insurance issue [Unknown]
  - Needle issue [Unknown]
  - Therapy change [Unknown]

NARRATIVE: CASE EVENT DATE: 20220916
